FAERS Safety Report 13070065 (Version 1)
Quarter: 2016Q4

REPORT INFORMATION
  Report Type: Spontaneous
  Country: RU (occurrence: RU)
  Receive Date: 20161228
  Receipt Date: 20161228
  Transmission Date: 20170207
  Serious: Yes (Other)
  Sender: FDA-Public Use
  Company Number: RU-ASTRAZENECA-2016SF35484

PATIENT
  Age: 47 Year
  Sex: Male
  Weight: 80 kg

DRUGS (5)
  1. BRILINTA [Suspect]
     Active Substance: TICAGRELOR
     Indication: MYOCARDIAL INFARCTION
     Route: 048
     Dates: start: 20160810
  2. CORONAL [Concomitant]
  3. CARDIOMAGNYL [Concomitant]
     Active Substance: ASPIRIN\MAGNESIUM HYDROXIDE
  4. ROSUVASTATINE [Concomitant]
     Active Substance: ROSUVASTATIN
  5. DIABETON [Concomitant]
     Active Substance: GLICLAZIDE

REACTIONS (2)
  - Coronary artery occlusion [Not Recovered/Not Resolved]
  - Vascular stent occlusion [Not Recovered/Not Resolved]

NARRATIVE: CASE EVENT DATE: 20161128
